FAERS Safety Report 6685139-2 (Version None)
Quarter: 2010Q2

REPORT INFORMATION
  Report Type: 
  Country: None (occurrence: None)
  Receive Date: 20100416
  Receipt Date: 20100406
  Transmission Date: 20101027
  Serious: Yes (Death, Other)
  Sender: FDA-Public Use
  Company Number: JP-PFIZER INC-2010044508

PATIENT
  Age: 84 Year
  Sex: Female

DRUGS (4)
  1. ZOLOFT [Suspect]
     Indication: DEPRESSION
     Dosage: 50 MG DAILY
     Route: 048
     Dates: start: 20080801
  2. ARICEPT [Suspect]
     Indication: DEMENTIA
     Dosage: 5 MG DAILY
     Route: 048
     Dates: start: 20080801
  3. YOKUKAN-SAN [Concomitant]
     Route: 048
     Dates: start: 20080801
  4. MAG-LAX [Concomitant]
     Route: 048
     Dates: start: 20080801

REACTIONS (3)
  - DEATH [None]
  - DRUG LEVEL INCREASED [None]
  - TROPONIN INCREASED [None]
